FAERS Safety Report 16391857 (Version 4)
Quarter: 2022Q4

REPORT INFORMATION
  Report Type: Spontaneous
  Country: PT (occurrence: PT)
  Receive Date: 20190605
  Receipt Date: 20221229
  Transmission Date: 20230113
  Serious: Yes (Hospitalization, Other)
  Sender: FDA-Public Use
  Company Number: PT-GILEAD-2019-0411578

PATIENT
  Age: 49 Year
  Sex: Male
  Weight: 80 kg

DRUGS (2)
  1. SOVALDI [Suspect]
     Active Substance: SOFOSBUVIR
     Indication: Chronic hepatitis C
     Dosage: 400 MG
     Route: 048
     Dates: start: 20180313
  2. DACLATASVIR [Suspect]
     Active Substance: DACLATASVIR
     Indication: Chronic hepatitis C
     Dosage: 60 MG
     Route: 048
     Dates: start: 20180313

REACTIONS (12)
  - Pulmonary tuberculosis [Recovered/Resolved]
  - Lung abscess [Unknown]
  - Decreased appetite [Unknown]
  - Weight decreased [Unknown]
  - Rales [Unknown]
  - Mucosal inflammation [Unknown]
  - Purulent discharge [Unknown]
  - Productive cough [Unknown]
  - Dyspnoea [Unknown]
  - Mycobacterium tuberculosis complex test [Unknown]
  - Pyrexia [Unknown]
  - Respiratory disorder [Unknown]

NARRATIVE: CASE EVENT DATE: 20180301
